FAERS Safety Report 23193518 (Version 2)
Quarter: 2023Q4

REPORT INFORMATION
  Report Type: Spontaneous
  Country: US (occurrence: US)
  Receive Date: 20231116
  Receipt Date: 20231123
  Transmission Date: 20240110
  Serious: Yes (Other)
  Sender: FDA-Public Use
  Company Number: US-TEVA-2023-US-2944231

PATIENT
  Age: 62 Year
  Sex: Female

DRUGS (18)
  1. ANASTROZOLE [Suspect]
     Active Substance: ANASTROZOLE
     Indication: Breast cancer female
     Dosage: 1 MILLIGRAM DAILY;
     Route: 048
     Dates: start: 201905
  2. ANASTROZOLE [Suspect]
     Active Substance: ANASTROZOLE
     Indication: Hormone receptor positive breast cancer
  3. LETROZOLE [Suspect]
     Active Substance: LETROZOLE
     Indication: Breast cancer female
     Dosage: 2.5 MILLIGRAM DAILY;
     Route: 048
     Dates: start: 201911
  4. LETROZOLE [Suspect]
     Active Substance: LETROZOLE
     Indication: Hormone receptor positive breast cancer
  5. TAMOXIFEN [Suspect]
     Active Substance: TAMOXIFEN
     Indication: Breast cancer female
     Dosage: 20 MILLIGRAM DAILY;
     Route: 048
  6. TAMOXIFEN [Suspect]
     Active Substance: TAMOXIFEN
     Indication: Hormone receptor positive breast cancer
  7. EXEMESTANE [Suspect]
     Active Substance: EXEMESTANE
     Indication: Breast cancer female
     Dosage: 25 MILLIGRAM DAILY;
     Route: 048
     Dates: start: 202010
  8. EXEMESTANE [Suspect]
     Active Substance: EXEMESTANE
     Indication: Hormone receptor positive breast cancer
  9. PAROXETINE MESYLATE [Suspect]
     Active Substance: PAROXETINE MESYLATE
     Indication: Hot flush
     Dosage: 7.5 MILLIGRAM DAILY;
     Route: 048
     Dates: start: 202012
  10. VARENICLINE [Suspect]
     Active Substance: VARENICLINE
     Indication: Smoking cessation therapy
     Route: 065
  11. NICOTINE [Suspect]
     Active Substance: NICOTINE
     Indication: Smoking cessation therapy
     Route: 061
  12. NICOTINE [Suspect]
     Active Substance: NICOTINE
     Route: 061
  13. NICOTINE [Suspect]
     Active Substance: NICOTINE
     Route: 061
  14. LISINOPRIL [Concomitant]
     Active Substance: LISINOPRIL
     Indication: Hypertension
     Dosage: 20 MILLIGRAM DAILY;
     Route: 048
  15. TIOTROPIUM [Concomitant]
     Active Substance: TIOTROPIUM
     Indication: Chronic obstructive pulmonary disease
     Dosage: 18 MICROGRAM DAILY; INHALATIONS
     Route: 048
  16. ALBUTEROL [Concomitant]
     Active Substance: ALBUTEROL
     Indication: Chronic obstructive pulmonary disease
     Dosage: 1 PUFF INHALED EVERY 4-6 H AS NEEDED
     Route: 055
  17. ALBUTEROL\IPRATROPIUM [Concomitant]
     Active Substance: ALBUTEROL\IPRATROPIUM
     Indication: Chronic obstructive pulmonary disease
     Dosage: IPRATROPIUM 0.5 MG/ALBUTEROL 2.5 MG, 1 NEBULIZED AMPULE INHALED ORALLY EVERY 6 H AS NEEDED
     Route: 048
  18. FLUTICASONE PROPIONATE\SALMETEROL XINAFOATE [Concomitant]
     Active Substance: FLUTICASONE PROPIONATE\SALMETEROL XINAFOATE
     Indication: Chronic obstructive pulmonary disease
     Dosage: FLUTICASONE 250 MCG/SALMETEROL 50 MICROG, 1 INHALATION ORALLY TWICE DAILY
     Route: 048

REACTIONS (2)
  - Menopausal symptoms [Recovering/Resolving]
  - Drug ineffective [Unknown]
